FAERS Safety Report 15461682 (Version 3)
Quarter: 2019Q1

REPORT INFORMATION
  Report Type: Report from Study
  Country: US (occurrence: US)
  Receive Date: 20181003
  Receipt Date: 20190208
  Transmission Date: 20190417
  Serious: Yes (Hospitalization, Other)
  Sender: FDA-Public Use
  Company Number: US-ARIAD-2017US007996

PATIENT
  Sex: Female

DRUGS (3)
  1. PONATINIB [Suspect]
     Active Substance: PONATINIB
     Indication: CHRONIC MYELOID LEUKAEMIA RECURRENT
     Dosage: 15 MG, QD
     Route: 048
     Dates: start: 20160916
  2. PONATINIB [Suspect]
     Active Substance: PONATINIB
     Dosage: 45 MG, QD
     Route: 048
  3. OMEPRAZOLE. [Concomitant]
     Active Substance: OMEPRAZOLE
     Dosage: UNK

REACTIONS (29)
  - Hepatomegaly [Unknown]
  - Nausea [Unknown]
  - Fatigue [Unknown]
  - Blood albumin abnormal [Unknown]
  - Normocytic anaemia [Unknown]
  - Discomfort [Unknown]
  - Pneumonia [Unknown]
  - Gastrooesophageal reflux disease [Unknown]
  - Eating disorder [Unknown]
  - Splenic infarction [Unknown]
  - Chronic myeloid leukaemia [Unknown]
  - Infection [Unknown]
  - Heart rate increased [Unknown]
  - Haemoglobin abnormal [Unknown]
  - Blood count abnormal [Unknown]
  - Pericardial effusion [Unknown]
  - Cardiomegaly [Unknown]
  - White blood cell count increased [Unknown]
  - Vomiting [Unknown]
  - Mean cell haemoglobin concentration abnormal [Unknown]
  - Decreased appetite [Unknown]
  - Red cell distribution width abnormal [Unknown]
  - Splenomegaly [Unknown]
  - Abdominal pain lower [Unknown]
  - Haematocrit abnormal [Unknown]
  - Red blood cell count abnormal [Unknown]
  - Thrombocytopenia [Unknown]
  - Leukocytosis [Unknown]
  - Feeling abnormal [Unknown]
